FAERS Safety Report 7736200-2 (Version None)
Quarter: 2011Q3

REPORT INFORMATION
  Report Type: 
  Country: None (occurrence: None)
  Receive Date: 20110908
  Receipt Date: 20110117
  Transmission Date: 20111222
  Serious: Yes (Disabling, Other)
  Sender: FDA-Public Use
  Company Number: US-BAYER-201031065NA

PATIENT
  Age: 29 Year
  Sex: Female
  Weight: 44.444 kg

DRUGS (6)
  1. CARAFATE [Concomitant]
  2. NYQUIL [Concomitant]
  3. ATIVAN [Concomitant]
  4. YAZ [Suspect]
     Indication: ACNE
     Dosage: UNK UNK, UNK
     Route: 048
     Dates: start: 20071101, end: 20080615
  5. WELLBUTRIN [Concomitant]
  6. ACIPHEX [Concomitant]

REACTIONS (17)
  - ANXIETY [None]
  - SUICIDE ATTEMPT [None]
  - PARANOIA [None]
  - WEIGHT INCREASED [None]
  - LOSS OF LIBIDO [None]
  - DYSMENORRHOEA [None]
  - HORMONE LEVEL ABNORMAL [None]
  - THYROID DISORDER [None]
  - DEPRESSION [None]
  - AGORAPHOBIA [None]
  - SELF ESTEEM DECREASED [None]
  - VARICOSE VEIN [None]
  - ASTHENIA [None]
  - FEELINGS OF WORTHLESSNESS [None]
  - MIGRAINE [None]
  - MENORRHAGIA [None]
  - ANGINA PECTORIS [None]
